FAERS Safety Report 8021480-9 (Version None)
Quarter: 2012Q1

REPORT INFORMATION
  Report Type: 
  Country: None (occurrence: None)
  Receive Date: 20120104
  Receipt Date: 20120102
  Transmission Date: 20120608
  Serious: Yes (Life-Threatening, Congenital Anomaly, Other)
  Sender: FDA-Public Use
  Company Number: US-JNJFOC-20110709676

PATIENT
  Sex: Male

DRUGS (3)
  1. CLONAZEPAM [Suspect]
     Indication: FOETAL EXPOSURE DURING PREGNANCY
     Route: 065
  2. CITALOPRAM [Concomitant]
     Indication: FOETAL EXPOSURE DURING PREGNANCY
     Route: 065
  3. TOPAMAX [Suspect]
     Indication: FOETAL EXPOSURE DURING PREGNANCY
     Route: 064

REACTIONS (8)
  - ATTENTION DEFICIT/HYPERACTIVITY DISORDER [None]
  - POST-TRAUMATIC STRESS DISORDER [None]
  - CHRONIC SINUSITIS [None]
  - CLEFT LIP AND PALATE [None]
  - COMMUNICATION DISORDER [None]
  - ANXIETY [None]
  - CONGENITAL ANOMALY [None]
  - DEPRESSION [None]
